FAERS Safety Report 8040493-4 (Version None)
Quarter: 2012Q1

REPORT INFORMATION
  Report Type: 
  Country: None (occurrence: None)
  Receive Date: 20120111
  Receipt Date: 20111230
  Transmission Date: 20120608
  Serious: No
  Sender: FDA-Public Use
  Company Number: US-AMGEN-USASP2011069700

PATIENT
  Age: 71 Year
  Sex: Female

DRUGS (2)
  1. ENBREL [Suspect]
     Indication: RHEUMATOID ARTHRITIS
     Dosage: 50 MG, QWK
     Dates: start: 20111206
  2. ENBREL [Suspect]
     Indication: PSORIASIS

REACTIONS (4)
  - LIMB INJURY [None]
  - FATIGUE [None]
  - PALLOR [None]
  - CONTUSION [None]
